FAERS Safety Report 6917716-5 (Version None)
Quarter: 2010Q3

REPORT INFORMATION
  Report Type: 
  Country: None (occurrence: None)
  Receive Date: 20100810
  Receipt Date: 20100803
  Transmission Date: 20110219
  Serious: Yes (Other)
  Sender: FDA-Public Use
  Company Number: GB-WYE-G06496310

PATIENT
  Sex: Male

DRUGS (1)
  1. TIGECYCLINE [Suspect]
     Dosage: OVERDOSE OF 200MG TWICE DAILY (7 DOSES)

REACTIONS (2)
  - OVERDOSE [None]
  - SOMNOLENCE [None]
